FAERS Safety Report 9191650 (Version 2)
Quarter: 2013Q2

REPORT INFORMATION
  Report Type: Spontaneous
  Country: US (occurrence: US)
  Receive Date: 20130326
  Receipt Date: 20130409
  Transmission Date: 20140414
  Serious: Yes (Death)
  Sender: FDA-Public Use
  Company Number: US-GILEAD-2013-0072430

PATIENT
  Sex: Male

DRUGS (1)
  1. LETAIRIS [Suspect]
     Indication: PULMONARY ARTERIAL HYPERTENSION
     Dosage: 10 MG, QD
     Dates: start: 20120308, end: 20130319

REACTIONS (2)
  - Renal failure acute [Fatal]
  - Pulmonary hypertension [Fatal]
